FAERS Safety Report 7664941-4 (Version None)
Quarter: 2011Q3

REPORT INFORMATION
  Report Type: 
  Country: None (occurrence: None)
  Receive Date: 20110806
  Receipt Date: 20110210
  Transmission Date: 20111222
  Serious: No
  Sender: FDA-Public Use
  Company Number: US-ABBOTT-10P-163-0639189-00

PATIENT
  Sex: Male
  Weight: 76.272 kg

DRUGS (19)
  1. CRESTOR [Concomitant]
     Indication: CORONARY ARTERY BYPASS
  2. PROTONIX [Concomitant]
     Indication: PRODUCT USED FOR UNKNOWN INDICATION
  3. NIASPAN [Suspect]
     Indication: CORONARY ARTERY BYPASS
     Dates: start: 20100301
  4. IMDUR [Concomitant]
     Indication: CORONARY ARTERY BYPASS
  5. FLOMAX [Concomitant]
     Indication: PROSTATITIS
  6. PLAVIX [Concomitant]
     Indication: PRODUCT USED FOR UNKNOWN INDICATION
  7. NIASPAN [Suspect]
  8. GLIMEPIRIDE [Concomitant]
     Indication: TYPE 2 DIABETES MELLITUS
  9. POTASSIUM [Concomitant]
     Indication: PRODUCT USED FOR UNKNOWN INDICATION
  10. ASPIRIN [Concomitant]
     Indication: PROPHYLAXIS
     Dosage: IN THE MORNING
     Route: 048
     Dates: end: 20100901
  11. CRESTOR [Concomitant]
     Indication: BLOOD CHOLESTEROL INCREASED
     Dates: start: 20100408
  12. FERROUS SULFATE TAB [Concomitant]
     Indication: ANAEMIA
  13. LISINOPRIL [Concomitant]
     Indication: HYPERTENSION
  14. IMDUR [Concomitant]
     Indication: HYPERTENSION
  15. ASPIRIN [Concomitant]
     Indication: CORONARY ARTERY BYPASS
     Route: 048
     Dates: start: 20100901
  16. HYTRIN [Concomitant]
     Indication: HYPERTENSION
  17. ATENOLOL [Concomitant]
     Indication: HYPERTENSION
  18. NIASPAN [Suspect]
     Indication: HYPERTENSION
     Dosage: AT BEDTIME
     Dates: start: 20100101, end: 20100901
  19. FLOMAX [Concomitant]
     Indication: PROSTATOMEGALY

REACTIONS (3)
  - FLUSHING [None]
  - ANAEMIA [None]
  - PRURITUS [None]
